FAERS Safety Report 4926678-1 (Version None)
Quarter: 2006Q1

REPORT INFORMATION
  Report Type: 
  Country: None (occurrence: None)
  Receive Date: 20060228
  Receipt Date: 20050523
  Transmission Date: 20060701
  Serious: No
  Sender: FDA-Public Use
  Company Number: US-GLAXOSMITHKLINE-A0559772A

PATIENT
  Age: 40 Year
  Sex: Female

DRUGS (4)
  1. LAMICTAL [Suspect]
     Indication: BIPOLAR DISORDER
     Dosage: 300MG PER DAY
     Route: 048
  2. GABITRIL [Concomitant]
  3. LORAZEPAM [Concomitant]
  4. ZYPREXA [Concomitant]

REACTIONS (2)
  - MEMORY IMPAIRMENT [None]
  - NEUROLOGICAL SYMPTOM [None]
